FAERS Safety Report 4550994-9 (Version None)
Quarter: 2005Q1

REPORT INFORMATION
  Report Type: 
  Country: None (occurrence: None)
  Receive Date: 20050113
  Receipt Date: 20040121
  Transmission Date: 20050727
  Serious: No
  Sender: FDA-Public Use
  Company Number: US-BRISTOL-MYERS SQUIBB COMPANY-12484788

PATIENT
  Age: 64 Year
  Sex: Male

DRUGS (1)
  1. CARDIOLITE [Suspect]
     Indication: CARDIAC STRESS TEST
     Dosage: ROUTE: INJECTION
     Route: 051
     Dates: start: 20040121, end: 20040121

REACTIONS (2)
  - PRURITUS [None]
  - RASH [None]
